FAERS Safety Report 6918527-7 (Version None)
Quarter: 2010Q3

REPORT INFORMATION
  Report Type: 
  Country: None (occurrence: None)
  Receive Date: 20100811
  Receipt Date: 20100802
  Transmission Date: 20110219
  Serious: Yes (Hospitalization)
  Sender: FDA-Public Use
  Company Number: FR-ASTRAZENECA-2010SE36165

PATIENT
  Age: 18816 Day
  Sex: Female
  Weight: 148 kg

DRUGS (3)
  1. NEXIUM [Suspect]
     Route: 042
     Dates: start: 20100628, end: 20100629
  2. TENORMIN [Concomitant]
     Indication: AGITATION
  3. CIPRALAN [Concomitant]
     Indication: AGITATION

REACTIONS (1)
  - HAEMORRHAGIC ANAEMIA [None]
